FAERS Safety Report 14933565 (Version 1)
Quarter: 2018Q2

REPORT INFORMATION
  Report Type: Spontaneous
  Country: DE (occurrence: DE)
  Receive Date: 20180524
  Receipt Date: 20180524
  Transmission Date: 20180711
  Serious: Yes (Death, Other)
  Sender: FDA-Public Use
  Company Number: DE-WEST-WARD PHARMACEUTICALS CORP.-DE-H14001-18-04193

PATIENT
  Age: 54 Year
  Sex: Female

DRUGS (11)
  1. EXEMESTANE. [Suspect]
     Active Substance: EXEMESTANE
     Indication: PRODUCT USED FOR UNKNOWN INDICATION
     Dosage: UNK ()
     Route: 065
     Dates: start: 20171026
  2. PALBOCICLIB [Suspect]
     Active Substance: PALBOCICLIB
     Dosage: 8TH CYCLE ()
     Route: 065
     Dates: start: 20170721
  3. PACLITAXEL. [Suspect]
     Active Substance: PACLITAXEL
     Indication: PRODUCT USED FOR UNKNOWN INDICATION
     Dosage: UNK, QW (1)
     Route: 065
     Dates: start: 201609, end: 201612
  4. EXEMESTANE. [Suspect]
     Active Substance: EXEMESTANE
     Dosage: UNK ()
     Route: 065
     Dates: start: 20171010
  5. PALBOCICLIB [Suspect]
     Active Substance: PALBOCICLIB
     Indication: PRODUCT USED FOR UNKNOWN INDICATION
     Dosage: 7TH CYCLE ()
     Route: 065
     Dates: start: 20170623
  6. PALBOCICLIB [Suspect]
     Active Substance: PALBOCICLIB
     Dosage: 100 MG, QD (2ND CYCLE)
     Route: 065
  7. ZOMETA [Suspect]
     Active Substance: ZOLEDRONIC ACID
     Dosage: UNK, CYCLIC (EVERY 8 WEEKS) ()
     Route: 065
  8. PALBOCICLIB [Suspect]
     Active Substance: PALBOCICLIB
     Dosage: 75 MG, (3RD CYCLE)
     Route: 065
  9. PALBOCICLIB [Suspect]
     Active Substance: PALBOCICLIB
     Dosage: 1ST CYCLE ()
     Route: 065
  10. ZOMETA [Suspect]
     Active Substance: ZOLEDRONIC ACID
     Indication: PRODUCT USED FOR UNKNOWN INDICATION
     Dosage: UNK, CYCLIC (EVERY 8 WEEKS) ()
     Route: 065
     Dates: start: 201609, end: 201612
  11. FASLODEX [Suspect]
     Active Substance: FULVESTRANT
     Indication: PRODUCT USED FOR UNKNOWN INDICATION
     Dosage: 75 MG, UNK
     Route: 065
     Dates: start: 20170623

REACTIONS (11)
  - Back pain [Unknown]
  - Fatigue [Unknown]
  - Leukopenia [Unknown]
  - Metastases to liver [Unknown]
  - Lumbar vertebral fracture [Unknown]
  - Metastases to lung [Unknown]
  - Anaemia [Unknown]
  - Death [Fatal]
  - Metastases to bone [Unknown]
  - Haemoglobin decreased [Unknown]
  - Cachexia [Unknown]

NARRATIVE: CASE EVENT DATE: 20170815
